FAERS Safety Report 18266518 (Version 1)
Quarter: 2020Q3

REPORT INFORMATION
  Report Type: Report from Study
  Country: BR (occurrence: BR)
  Receive Date: 20200915
  Receipt Date: 20200915
  Transmission Date: 20201103
  Serious: Yes (Disabling)
  Sender: FDA-Public Use
  Company Number: NVSC2020BR250389

PATIENT
  Sex: Female

DRUGS (1)
  1. SEEBRI [Suspect]
     Active Substance: GLYCOPYRROLATE
     Indication: LUNG DISORDER
     Dosage: UNK (STARTED ONE YEAR AGO)
     Route: 065

REACTIONS (6)
  - Memory impairment [Unknown]
  - Fatigue [Unknown]
  - Concomitant disease aggravated [Unknown]
  - Deafness [Unknown]
  - Dizziness [Unknown]
  - Malaise [Unknown]
